FAERS Safety Report 7771249-5 (Version None)
Quarter: 2011Q3

REPORT INFORMATION
  Report Type: 
  Country: None (occurrence: None)
  Receive Date: 20110922
  Receipt Date: 20110913
  Transmission Date: 20111222
  Serious: Yes (Other)
  Sender: FDA-Public Use
  Company Number: US-AMGEN-USASP2011047119

PATIENT
  Age: 55 Year
  Sex: Male

DRUGS (1)
  1. ENBREL [Suspect]
     Indication: ANKYLOSING SPONDYLITIS
     Dosage: 50 MG, QWK
     Dates: start: 20080201

REACTIONS (5)
  - BACK PAIN [None]
  - LIP AND/OR ORAL CAVITY CANCER [None]
  - LACERATION [None]
  - ARTHRALGIA [None]
  - SARCOMA [None]
